FAERS Safety Report 9925389 (Version 1)
Quarter: 2014Q1

REPORT INFORMATION
  Report Type: Spontaneous
  Country: US (occurrence: None)
  Receive Date: 20140224
  Receipt Date: 20140224
  Transmission Date: 20141002
  Serious: Yes (Death)
  Sender: FDA-Public Use
  Company Number: 1713747-2014-99909

PATIENT
  Sex: Male

DRUGS (1)
  1. PERITONEAL DIALYSIS SOLUTION [Suspect]
     Indication: RENAL FAILURE CHRONIC

REACTIONS (2)
  - Fungal peritonitis [None]
  - Hypoglycaemia [None]
